FAERS Safety Report 5528240-9 (Version None)
Quarter: 2007Q4

REPORT INFORMATION
  Report Type: 
  Country: None (occurrence: None)
  Receive Date: 20071128
  Receipt Date: 20071119
  Transmission Date: 20080405
  Serious: Yes (Other)
  Sender: FDA-Public Use
  Company Number: BR-ABBOTT-07P-020-0425144-00

PATIENT
  Age: 28 Year
  Sex: Male
  Weight: 84 kg

DRUGS (1)
  1. HUMIRA [Suspect]
     Indication: AUTOIMMUNE DISORDER
     Route: 058
     Dates: start: 20050101, end: 20070301

REACTIONS (5)
  - IMMUNODEFICIENCY [None]
  - INNER EAR INFLAMMATION [None]
  - PHARYNGEAL INFLAMMATION [None]
  - PHARYNGOLARYNGEAL PAIN [None]
  - TYMPANIC MEMBRANE DISORDER [None]
